FAERS Safety Report 19440679 (Version 1)
Quarter: 2021Q2

REPORT INFORMATION
  Report Type: Spontaneous
  Country: US (occurrence: US)
  Receive Date: 20210621
  Receipt Date: 20210621
  Transmission Date: 20210717
  Serious: Yes (Death, Hospitalization, Other)
  Sender: FDA-Public Use
  Company Number: US-CHEPLA-C20213032

PATIENT
  Age: 54 Year
  Sex: Male

DRUGS (16)
  1. FOSCARNET [Suspect]
     Active Substance: FOSCARNET
     Indication: CYTOMEGALOVIRUS INFECTION
     Dates: start: 2018
  2. GANCICLOVIR. [Suspect]
     Active Substance: GANCICLOVIR
     Indication: CYTOMEGALOVIRUS INFECTION
  3. GANCICLOVIR. [Suspect]
     Active Substance: GANCICLOVIR
     Indication: CYTOMEGALOVIRUS INFECTION
     Dosage: 44 DAYS POST MUD?HCT
     Dates: start: 20181018
  4. PREVYMIS [Suspect]
     Active Substance: LETERMOVIR
     Indication: CYTOMEGALOVIRUS INFECTION
     Dates: start: 201809
  5. METHOTREXATE. [Suspect]
     Active Substance: METHOTREXATE
     Indication: PROPHYLAXIS AGAINST GRAFT VERSUS HOST DISEASE
  6. VALGANCICLOVIR. [Suspect]
     Active Substance: VALGANCICLOVIR
     Indication: CYTOMEGALOVIRUS INFECTION
  7. ADIMLECLEUCEL. [Suspect]
     Active Substance: ADIMLECLEUCEL
     Dosage: TWO CYCLES
  8. RUXOLITINIB [Suspect]
     Active Substance: RUXOLITINIB
     Indication: ORGANISING PNEUMONIA
  9. CIDOFOVIR. [Suspect]
     Active Substance: CIDOFOVIR
     Dosage: UNK ON DAY 150 POST MUS?HCT
  10. TACROLIMUS. [Suspect]
     Active Substance: TACROLIMUS
     Indication: PROPHYLAXIS AGAINST GRAFT VERSUS HOST DISEASE
  11. HUMAN NORMAL IMMUNOGLOBULIN [Concomitant]
     Active Substance: HUMAN IMMUNOGLOBULIN G
     Indication: PROPHYLAXIS AGAINST GRAFT VERSUS HOST DISEASE
  12. FOSCARNET [Suspect]
     Active Substance: FOSCARNET
     Indication: CYTOMEGALOVIRUS INFECTION
     Dates: start: 2018
  13. PREVYMIS [Suspect]
     Active Substance: LETERMOVIR
     Indication: CYTOMEGALOVIRUS INFECTION
     Dosage: 480 MG, DAILY
     Dates: start: 20190202
  14. METHYLPREDNISOLONE. [Suspect]
     Active Substance: METHYLPREDNISOLONE
     Dosage: 1 MG/KG
  15. LEFLUNOMIDE. [Suspect]
     Active Substance: LEFLUNOMIDE
     Dosage: AFTER 3 DAY OF TWICE DAILY LOADING
  16. PREVYMIS [Suspect]
     Active Substance: LETERMOVIR
     Indication: CYTOMEGALOVIRUS INFECTION
     Dosage: 960 MG, DAILY
     Dates: start: 20190201

REACTIONS (4)
  - Pancytopenia [Unknown]
  - Pyrexia [Unknown]
  - Pathogen resistance [Fatal]
  - Viral mutation identified [Unknown]

NARRATIVE: CASE EVENT DATE: 2018
